FAERS Safety Report 7770511-X (Version None)
Quarter: 2011Q3

REPORT INFORMATION
  Report Type: 
  Country: None (occurrence: None)
  Receive Date: 20110922
  Receipt Date: 20101014
  Transmission Date: 20111222
  Serious: No
  Sender: FDA-Public Use
  Company Number: US-ASTRAZENECA-2010SE48752

PATIENT
  Age: 51 Year
  Sex: Female
  Weight: 72.6 kg

DRUGS (3)
  1. SEROQUEL XR [Suspect]
     Indication: BIPOLAR DISORDER
     Route: 048
     Dates: start: 20081001, end: 20081201
  2. SEROQUEL XR [Suspect]
     Route: 048
     Dates: start: 20081201
  3. SEROQUEL XR [Suspect]
     Route: 048

REACTIONS (4)
  - FOOD POISONING [None]
  - PANIC ATTACK [None]
  - WEIGHT INCREASED [None]
  - WEIGHT DECREASED [None]
